FAERS Safety Report 7654369-5 (Version None)
Quarter: 2011Q3

REPORT INFORMATION
  Report Type: 
  Country: None (occurrence: None)
  Receive Date: 20110803
  Receipt Date: 20110725
  Transmission Date: 20111222
  Serious: Yes (Hospitalization, Other)
  Sender: FDA-Public Use
  Company Number: US-B.I. PHARMACEUTICALS,INC./RIDGEFIELD-2011-BP-13217BP

PATIENT
  Sex: Female

DRUGS (2)
  1. MIRAPEX [Suspect]
     Dates: start: 20100329, end: 20110224
  2. MIRAPEX [Suspect]
     Indication: PARKINSON'S DISEASE
     Dates: start: 19970101, end: 20100321

REACTIONS (16)
  - HYPERSEXUALITY [None]
  - EMOTIONAL DISTRESS [None]
  - UPPER LIMB FRACTURE [None]
  - BACK INJURY [None]
  - COMPULSIVE HOARDING [None]
  - SOMNOLENCE [None]
  - IMPULSE-CONTROL DISORDER [None]
  - SUICIDAL IDEATION [None]
  - PATHOLOGICAL GAMBLING [None]
  - FALL [None]
  - PAIN [None]
  - TOXICITY TO VARIOUS AGENTS [None]
  - ROAD TRAFFIC ACCIDENT [None]
  - DRUG WITHDRAWAL SYNDROME [None]
  - INSOMNIA [None]
  - HIP FRACTURE [None]
